FAERS Safety Report 18661666 (Version 1)
Quarter: 2020Q4

REPORT INFORMATION
  Report Type: Spontaneous
  Country: CN (occurrence: CN)
  Receive Date: 20201224
  Receipt Date: 20201224
  Transmission Date: 20210114
  Serious: Yes (Hospitalization, Other)
  Sender: FDA-Public Use
  Company Number: CN-PFIZER INC-2020503930

PATIENT
  Age: 19 Year
  Sex: Male
  Weight: 47 kg

DRUGS (1)
  1. METHOTREXATE. [Suspect]
     Active Substance: METHOTREXATE
     Indication: CHEMOTHERAPY
     Dosage: 1 G, 1X/DAY
     Route: 041
     Dates: start: 20201103, end: 20201103

REACTIONS (8)
  - Myelosuppression [Unknown]
  - Mouth haemorrhage [Unknown]
  - Sepsis [Unknown]
  - Mouth ulceration [Unknown]
  - Acid base balance abnormal [Unknown]
  - Electrolyte imbalance [Unknown]
  - Gastrointestinal disorder [Unknown]
  - Cardiac failure [Unknown]

NARRATIVE: CASE EVENT DATE: 20201103
